FAERS Safety Report 7671746-7 (Version None)
Quarter: 2011Q3

REPORT INFORMATION
  Report Type: 
  Country: None (occurrence: None)
  Receive Date: 20110727
  Receipt Date: 20110712
  Transmission Date: 20111222
  Serious: Yes (Hospitalization, Other)
  Sender: FDA-Public Use
  Company Number: 18280

PATIENT
  Sex: Female
  Weight: 64.4108 kg

DRUGS (2)
  1. SEVERAL MEDICATION,NOT SPECIFIED [Concomitant]
  2. GLASSIA [Suspect]
     Indication: ALPHA-1 ANTI-TRYPSIN DEFICIENCY
     Dosage: WEEKLY, IV
     Route: 042
     Dates: start: 20110401

REACTIONS (4)
  - OEDEMA [None]
  - FLUID RETENTION [None]
  - WEIGHT INCREASED [None]
  - SWELLING [None]
